FAERS Safety Report 12314444 (Version 1)
Quarter: 2016Q2

REPORT INFORMATION
  Report Type: Report from Study
  Country: CN (occurrence: CN)
  Receive Date: 20160428
  Receipt Date: 20160428
  Transmission Date: 20160815
  Serious: Yes (Other)
  Sender: FDA-Public Use
  Company Number: CN-GLAXOSMITHKLINE-CN2016GSK059065

PATIENT

DRUGS (3)
  1. LAMIVUDINE. [Suspect]
     Active Substance: LAMIVUDINE
     Indication: ANTIVIRAL TREATMENT
  2. ADEFOVIR DIPIVOXIL. [Suspect]
     Active Substance: ADEFOVIR DIPIVOXIL
     Indication: ANTIVIRAL TREATMENT
  3. TELBIVUDINE [Suspect]
     Active Substance: TELBIVUDINE
     Indication: ANTIVIRAL TREATMENT

REACTIONS (2)
  - Pathogen resistance [Unknown]
  - Multiple-drug resistance [Unknown]
